FAERS Safety Report 13552379 (Version 11)
Quarter: 2019Q1

REPORT INFORMATION
  Report Type: Spontaneous
  Country: JP (occurrence: JP)
  Receive Date: 20170517
  Receipt Date: 20190222
  Transmission Date: 20190417
  Serious: Yes (Death, Hospitalization, Other)
  Sender: FDA-Public Use
  Company Number: JP-009507513-1705JPN001080J

PATIENT
  Age: 72 Year
  Sex: Male
  Weight: 46 kg

DRUGS (7)
  1. ROZEREM [Concomitant]
     Active Substance: RAMELTEON
     Dosage: 1 DF, UNK
     Route: 048
     Dates: start: 20150315, end: 20170531
  2. ASTOMIN [Concomitant]
     Active Substance: DIMEMORFAN
     Dosage: 3 DF, UNK
     Route: 048
     Dates: start: 20160118, end: 20170531
  3. MAGMITT [Concomitant]
     Active Substance: MAGNESIUM OXIDE
     Dosage: 2 DF, TID
     Route: 048
     Dates: start: 20150228, end: 20170531
  4. CODEINE PHOSPHATE HYDRATE [Concomitant]
     Active Substance: CODEINE PHOSPHATE
     Dosage: 2 G, TID
     Route: 048
     Dates: start: 20160313, end: 20170531
  5. LYRICA [Concomitant]
     Active Substance: PREGABALIN
     Dosage: 1 DF, UNK
     Route: 048
     Dates: start: 20151128, end: 20170531
  6. KEYTRUDA [Suspect]
     Active Substance: PEMBROLIZUMAB
     Indication: LUNG SQUAMOUS CELL CARCINOMA STAGE IV
     Dosage: 200 MG, Q3W
     Route: 041
     Dates: start: 20170419, end: 20170419
  7. HUMALOG MIX [Concomitant]
     Active Substance: INSULIN LISPRO
     Dosage: 8 DF, UNK
     Route: 058
     Dates: start: 20150315, end: 20170531

REACTIONS (2)
  - Malignant neoplasm progression [Fatal]
  - Interstitial lung disease [Recovered/Resolved]

NARRATIVE: CASE EVENT DATE: 2017
